FAERS Safety Report 10241510 (Version 2)
Quarter: 2014Q4

REPORT INFORMATION
  Report Type: Spontaneous
  Country: US (occurrence: US)
  Receive Date: 20140617
  Receipt Date: 20141224
  Transmission Date: 20150528
  Serious: Yes (Death, Other)
  Sender: FDA-Public Use
  Company Number: US-ELI_LILLY_AND_COMPANY-US201406004763

PATIENT
  Age: 71 Year
  Sex: Male

DRUGS (2)
  1. AXIRON [Suspect]
     Active Substance: TESTOSTERONE
     Indication: BLOOD TESTOSTERONE DECREASED
     Dosage: APPLY TWO PUMPS DAILY
     Route: 065
     Dates: start: 20120217, end: 20120610
  2. ANDROGEL [Suspect]
     Active Substance: TESTOSTERONE
     Indication: BLOOD TESTOSTERONE DECREASED
     Dosage: APPLY 4 PUMPS DAILY
     Route: 065
     Dates: start: 2010, end: 20111220

REACTIONS (3)
  - Acute myocardial infarction [Fatal]
  - Hyperlipidaemia [Unknown]
  - Cor pulmonale [Fatal]

NARRATIVE: CASE EVENT DATE: 20120610
